FAERS Safety Report 7807397-0 (Version None)
Quarter: 2011Q4

REPORT INFORMATION
  Report Type: 
  Country: None (occurrence: None)
  Receive Date: 20111011
  Receipt Date: 20111006
  Transmission Date: 20120403
  Serious: Yes (Death, Hospitalization)
  Sender: FDA-Public Use
  Company Number: FR-AMGEN-FRACT2011045287

PATIENT
  Age: 53 Year
  Sex: Male

DRUGS (4)
  1. PANITUMUMAB [Suspect]
     Indication: COLORECTAL CANCER METASTATIC
     Dosage: UNK UNK, Q2WK
     Route: 042
     Dates: start: 20110705
  2. NEXIUM [Concomitant]
     Dosage: 40 MG, QD
     Route: 048
     Dates: end: 20110829
  3. LYRICA [Concomitant]
     Dosage: 150 MG, TID
     Route: 048
     Dates: end: 20110829
  4. LASIX [Concomitant]
     Dosage: 40 MG, QD
     Route: 048
     Dates: end: 20110829

REACTIONS (4)
  - DYSPNOEA [None]
  - GENERAL PHYSICAL HEALTH DETERIORATION [None]
  - OEDEMA PERIPHERAL [None]
  - DISEASE PROGRESSION [None]
